FAERS Safety Report 17546210 (Version 1)
Quarter: 2020Q1

REPORT INFORMATION
  Report Type: Spontaneous
  Country: US (occurrence: US)
  Receive Date: 20200316
  Receipt Date: 20200316
  Transmission Date: 20200409
  Serious: Yes (Other)
  Sender: FDA-Public Use
  Company Number: None

PATIENT
  Sex: Female

DRUGS (2)
  1. METOPROLOL 25 MG [Suspect]
     Active Substance: METOPROLOL
  2. PROPRANOLOL 60MG [Suspect]
     Active Substance: PROPRANOLOL HYDROCHLORIDE

REACTIONS (2)
  - Palpitations [None]
  - Fatigue [None]
